FAERS Safety Report 6877278-8 (Version None)
Quarter: 2010Q3

REPORT INFORMATION
  Report Type: 
  Country: None (occurrence: None)
  Receive Date: 20100727
  Receipt Date: 20090818
  Transmission Date: 20110219
  Serious: No
  Sender: FDA-Public Use
  Company Number: US-ABBOTT-09P-163-0592853-00

PATIENT
  Sex: Male
  Weight: 97.61 kg

DRUGS (3)
  1. SYNTHROID [Suspect]
     Indication: THYROIDECTOMY
     Route: 048
     Dates: start: 20080101
  2. SYNTHROID [Suspect]
     Route: 048
     Dates: start: 20090501
  3. SYNTHROID [Suspect]
     Route: 048
     Dates: end: 20090501

REACTIONS (4)
  - CONSTIPATION [None]
  - OEDEMA PERIPHERAL [None]
  - TEMPERATURE INTOLERANCE [None]
  - WEIGHT DECREASED [None]
